FAERS Safety Report 25949160 (Version 1)
Quarter: 2025Q4

REPORT INFORMATION
  Report Type: Spontaneous
  Country: EU (occurrence: EU)
  Receive Date: 20251022
  Receipt Date: 20251022
  Transmission Date: 20260117
  Serious: Yes (Other)
  Sender: BRISTOL-MYERS SQUIBB COMPANY
  Company Number: EU-BRISTOL-MYERS SQUIBB COMPANY-2025-141254

PATIENT
  Age: 81 Year
  Sex: Female

DRUGS (5)
  1. LENALIDOMIDE [Suspect]
     Active Substance: LENALIDOMIDE
     Indication: Diffuse large B-cell lymphoma
  2. LENALIDOMIDE [Suspect]
     Active Substance: LENALIDOMIDE
     Dates: start: 202503, end: 202508
  3. TAFASITAMAB [Suspect]
     Active Substance: TAFASITAMAB
     Indication: Diffuse large B-cell lymphoma
     Dates: start: 202411
  4. TAFASITAMAB [Suspect]
     Active Substance: TAFASITAMAB
     Dates: start: 202503, end: 202508
  5. APIXABAN [Concomitant]
     Active Substance: APIXABAN
     Indication: Atrial fibrillation

REACTIONS (9)
  - Polyneuropathy [Unknown]
  - Fall [Unknown]
  - Urinary tract infection [Unknown]
  - Dizziness [Unknown]
  - Aortic aneurysm [Unknown]
  - Respiratory syncytial virus infection [Unknown]
  - Brain contusion [Unknown]
  - Off label use [Unknown]
  - Blood pressure abnormal [Unknown]

NARRATIVE: CASE EVENT DATE: 20241101
